FAERS Safety Report 18359000 (Version 1)
Quarter: 2020Q4

REPORT INFORMATION
  Report Type: Report from Study
  Country: IT (occurrence: IT)
  Receive Date: 20201008
  Receipt Date: 20201008
  Transmission Date: 20210114
  Serious: Yes (Other)
  Sender: FDA-Public Use
  Company Number: IT-TEVA-2020-IT-1835583

PATIENT
  Age: 78 Year
  Sex: Male

DRUGS (4)
  1. FINASTERIDE. [Concomitant]
     Active Substance: FINASTERIDE
     Dosage: 1 DOSAGE FORMS
  2. ESOMEPRAZOLE SODIUM. [Concomitant]
     Active Substance: ESOMEPRAZOLE SODIUM
     Dosage: 20 MG
  3. PREDNISONE. [Suspect]
     Active Substance: PREDNISONE
     Indication: SCLERODERMA
     Dosage: 75 MG
     Route: 048
     Dates: start: 20190802, end: 20200802
  4. ADALAT [Concomitant]
     Active Substance: NIFEDIPINE
     Dosage: 30 MG

REACTIONS (1)
  - Hyperadrenocorticism [Not Recovered/Not Resolved]

NARRATIVE: CASE EVENT DATE: 20200602
